FAERS Safety Report 11568985 (Version 1)
Quarter: 2015Q3

REPORT INFORMATION
  Report Type: Report from Study
  Country: BR (occurrence: BR)
  Receive Date: 20150929
  Receipt Date: 20150929
  Transmission Date: 20151125
  Serious: Yes (Other)
  Sender: FDA-Public Use
  Company Number: BR-ABBVIE-15K-020-1469204-00

PATIENT
  Sex: Female
  Weight: 77 kg

DRUGS (5)
  1. OMEPRAZOL [Concomitant]
     Active Substance: OMEPRAZOLE
     Indication: GASTRIC DISORDER
     Route: 048
     Dates: start: 2000
  2. HUMIRA [Suspect]
     Active Substance: ADALIMUMAB
     Indication: RHEUMATOID ARTHRITIS
     Route: 058
     Dates: start: 20100101
  3. PREDSIM [Concomitant]
     Active Substance: PREDNISOLONE
     Indication: ARTHRITIS
     Route: 048
     Dates: start: 2000
  4. OMEPRAZOL [Concomitant]
     Active Substance: OMEPRAZOLE
     Indication: PROPHYLAXIS
  5. CALCIUM CARBONATE/VITAMIN D3 [Concomitant]
     Indication: BONE DISORDER
     Dosage: FORM STRENGTH: 500 / 400 IU
     Route: 048
     Dates: start: 2000

REACTIONS (8)
  - Fall [Recovered/Resolved]
  - Diabetes mellitus [Unknown]
  - Therapeutic response unexpected [Unknown]
  - Tendon rupture [Recovered/Resolved]
  - Gait disturbance [Recovering/Resolving]
  - Post procedural complication [Recovering/Resolving]
  - Post procedural swelling [Recovering/Resolving]
  - Procedural pain [Recovering/Resolving]

NARRATIVE: CASE EVENT DATE: 2012
